FAERS Safety Report 9607395 (Version 1)
Quarter: 2013Q4

REPORT INFORMATION
  Report Type: Spontaneous
  Country: US (occurrence: None)
  Receive Date: 20131007
  Receipt Date: 20131007
  Transmission Date: 20140711
  Serious: Yes (Other)
  Sender: FDA-Public Use
  Company Number: AUR-APL-2013-08159

PATIENT
  Age: 40 Year
  Sex: Female
  Weight: 55.33 kg

DRUGS (9)
  1. VENLAFAXINE [Suspect]
     Indication: DEPRESSION
     Dosage: 37.5 MG  (37.5 MG, 1 IN 1 D), ORAL
     Route: 048
     Dates: start: 20130920, end: 20130921
  2. VENLAFAXINE [Suspect]
     Indication: ANXIETY
     Dosage: 37.5 MG  (37.5 MG, 1 IN 1 D), ORAL
     Route: 048
     Dates: start: 20130920, end: 20130921
  3. ADVIL (MEFENAMIC ACID) [Suspect]
     Indication: PRODUCT USED FOR UNKNOWN INDICATION
  4. TOPROL XL (METOPROLOL SUCCINATE) (100 MILLIGRAM) (METOPROLOL SUCCINATE) [Concomitant]
  5. SINGULAIR [Concomitant]
  6. LIPITOR (ATORVASTATIN CALCIUM) [Concomitant]
  7. LOESTRIN (ANOVLAR) [Concomitant]
  8. PRILOSEC [Concomitant]
  9. HYDROCHLOROTHIAZIDE (HYDROCHLOROTHIAZIDE) [Concomitant]

REACTIONS (10)
  - Drug interaction [None]
  - Vision blurred [None]
  - Disorientation [None]
  - Mydriasis [None]
  - Eye swelling [None]
  - Feeling jittery [None]
  - Nausea [None]
  - Restlessness [None]
  - Middle insomnia [None]
  - Dizziness [None]
